FAERS Safety Report 6496328-4 (Version None)
Quarter: 2009Q4

REPORT INFORMATION
  Report Type: 
  Country: None (occurrence: None)
  Receive Date: 20091209
  Receipt Date: 20090831
  Transmission Date: 20100525
  Serious: Yes (Other)
  Sender: FDA-Public Use
  Company Number: 1000010614

PATIENT
  Sex: 0

DRUGS (1)
  1. MEMANTINE HCL [Suspect]

REACTIONS (1)
  - DISINHIBITION [None]
